FAERS Safety Report 8890616 (Version 1)
Quarter: 2012Q4

REPORT INFORMATION
  Report Type: 
  Country: FI (occurrence: FI)
  Receive Date: 20121107
  Receipt Date: 20121107
  Transmission Date: 20130627
  Serious: Yes (Life-Threatening, Hospitalization, Other)
  Sender: FDA-Public Use
  Company Number: FI-ROCHE-1150672

PATIENT
  Age: 71 Year
  Sex: Male

DRUGS (5)
  1. XELODA [Suspect]
     Indication: PRODUCT USED FOR UNKNOWN INDICATION
     Route: 048
     Dates: start: 20120927
  2. PRIMASPAN [Concomitant]
  3. HYDANTIN [Concomitant]
  4. RIVATRIL [Concomitant]
  5. SIMVASTATIN [Concomitant]

REACTIONS (9)
  - Cardiac arrest [Recovering/Resolving]
  - Ventricular fibrillation [Recovering/Resolving]
  - Myocardial infarction [Recovering/Resolving]
  - Peripheral arterial occlusive disease [Unknown]
  - Myocarditis infectious [Unknown]
  - Pneumonia aspiration [Unknown]
  - Muscle twitching [Unknown]
  - Disorientation [Unknown]
  - Incoherent [Unknown]
